FAERS Safety Report 11240207 (Version 1)
Quarter: 2015Q3

REPORT INFORMATION
  Report Type: Spontaneous
  Country: US (occurrence: US)
  Receive Date: 20150706
  Receipt Date: 20150706
  Transmission Date: 20151125
  Serious: No
  Sender: FDA-Public Use
  Company Number: CHPA2015US008024

PATIENT
  Age: 69 Year
  Sex: Female

DRUGS (2)
  1. VOLTAREN [Suspect]
     Active Substance: DICLOFENAC SODIUM
     Indication: ROTATOR CUFF SYNDROME
     Dosage: UNK, TID
     Route: 061
     Dates: start: 201505
  2. VOLTAREN [Suspect]
     Active Substance: DICLOFENAC SODIUM
     Indication: PAIN IN EXTREMITY
     Dosage: UNK, TID
     Route: 061
     Dates: start: 2014

REACTIONS (4)
  - Therapeutic response unexpected [Unknown]
  - Product use issue [Unknown]
  - Inappropriate schedule of drug administration [Unknown]
  - Drug administered at inappropriate site [Unknown]

NARRATIVE: CASE EVENT DATE: 2014
